FAERS Safety Report 5620701-7 (Version None)
Quarter: 2008Q1

REPORT INFORMATION
  Report Type: 
  Country: None (occurrence: None)
  Receive Date: 20080208
  Receipt Date: 20080128
  Transmission Date: 20080703
  Serious: Yes (Hospitalization)
  Sender: FDA-Public Use
  Company Number: DE-GENENTECH-255459

PATIENT
  Sex: Male
  Weight: 82 kg

DRUGS (5)
  1. RITUXIMAB [Suspect]
     Indication: CHRONIC LYMPHOCYTIC LEUKAEMIA
     Dosage: 1000 MG, Q4W
     Route: 042
     Dates: start: 20070329
  2. BENDAMUSTINE [Suspect]
     Indication: CHRONIC LYMPHOCYTIC LEUKAEMIA
     Dosage: 160 MG, UNK
     Route: 042
     Dates: start: 20070330
  3. ALLOPURINOL [Concomitant]
     Indication: DRUG USE FOR UNKNOWN INDICATION
  4. PANTOZOL [Concomitant]
     Indication: DRUG USE FOR UNKNOWN INDICATION
  5. BIPHASIC INSULIN [Concomitant]
     Indication: DRUG USE FOR UNKNOWN INDICATION

REACTIONS (2)
  - DERMAL CYST [None]
  - LIPOMA [None]
